FAERS Safety Report 8173460-0 (Version None)
Quarter: 2012Q1

REPORT INFORMATION
  Report Type: 
  Country: None (occurrence: None)
  Receive Date: 20120223
  Receipt Date: 20120208
  Transmission Date: 20120608
  Serious: Yes (Hospitalization, Other)
  Sender: FDA-Public Use
  Company Number: 2008BIO19817

PATIENT
  Age: 80 Year
  Sex: Female
  Weight: 75.46 kg

DRUGS (11)
  1. ZEVALIN [Suspect]
     Indication: LYMPHOMA
     Dosage: 30.2 MCI, SINGLE, INTRAVENOUS
     Route: 042
     Dates: start: 20080513, end: 20080513
  2. RITUXAN [Suspect]
     Indication: LYMPHOMA
     Dates: start: 20080513, end: 20080523
  3. ENALAPRIL MALEATE [Concomitant]
  4. GLYBURIDE [Concomitant]
  5. SENNA ALEXANDRINA (SENNA ALEXANDRINA) [Concomitant]
  6. LYRICA [Concomitant]
  7. LEVOTHYROXINE SODIUM [Concomitant]
  8. LACTULOSE [Concomitant]
  9. FENTANYL [Concomitant]
  10. VELCADE [Suspect]
     Indication: LYMPHOMA
     Dates: start: 20080513
  11. COLACE (DOCUSATE SODIUM) [Concomitant]

REACTIONS (14)
  - PAIN IN EXTREMITY [None]
  - ATAXIA [None]
  - GASTRITIS [None]
  - GAIT DISTURBANCE [None]
  - DYSPHAGIA [None]
  - DECREASED APPETITE [None]
  - PERIPHERAL SENSORIMOTOR NEUROPATHY [None]
  - ASTHENIA [None]
  - DIZZINESS [None]
  - FAILURE TO THRIVE [None]
  - FATIGUE [None]
  - DEPRESSION [None]
  - SPINAL OSTEOARTHRITIS [None]
  - DEHYDRATION [None]
